FAERS Safety Report 6293210-2 (Version None)
Quarter: 2009Q3

REPORT INFORMATION
  Report Type: 
  Country: None (occurrence: None)
  Receive Date: 20090731
  Receipt Date: 20090721
  Transmission Date: 20100115
  Serious: Yes (Other)
  Sender: FDA-Public Use
  Company Number: US-WYE-H10247409

PATIENT
  Sex: Female
  Weight: 93.98 kg

DRUGS (4)
  1. PRISTIQ [Suspect]
     Indication: DEPRESSION
     Route: 048
     Dates: start: 20080101, end: 20090715
  2. CLONAZEPAM [Concomitant]
  3. CELEBREX [Concomitant]
  4. ALPRAZOLAM [Concomitant]
     Dosage: 0.5 MG AS NEEDED

REACTIONS (7)
  - BLOOD CHOLESTEROL INCREASED [None]
  - CONDITION AGGRAVATED [None]
  - MICTURITION DISORDER [None]
  - RENAL PAIN [None]
  - SUICIDAL IDEATION [None]
  - URINE COLOUR ABNORMAL [None]
  - URINE ODOUR ABNORMAL [None]
